FAERS Safety Report 23637471 (Version 2)
Quarter: 2024Q3

REPORT INFORMATION
  Report Type: Spontaneous
  Country: MX (occurrence: MX)
  Receive Date: 20240315
  Receipt Date: 20240918
  Transmission Date: 20241016
  Serious: Yes (Death)
  Sender: BIOMARIN
  Company Number: MX-BIOMARINAP-MX-2024-156250

PATIENT

DRUGS (1)
  1. NAGLAZYME [Suspect]
     Active Substance: GALSULFASE
     Indication: Mucopolysaccharidosis VI
     Dosage: UNK, QW
     Route: 042
     Dates: start: 20091201

REACTIONS (2)
  - Complication associated with device [Fatal]
  - Device occlusion [Unknown]

NARRATIVE: CASE EVENT DATE: 20240229
